FAERS Safety Report 13459858 (Version 2)
Quarter: 2017Q2

REPORT INFORMATION
  Report Type: Spontaneous
  Country: US (occurrence: US)
  Receive Date: 20170420
  Receipt Date: 20170530
  Transmission Date: 20170830
  Serious: No
  Sender: FDA-Public Use
  Company Number: US-ASTRAZENECA-2017SE38950

PATIENT
  Age: 24590 Day
  Sex: Male
  Weight: 90.7 kg

DRUGS (2)
  1. PULMICORT FLEXHALER [Suspect]
     Active Substance: BUDESONIDE
     Indication: PULMONARY CONGESTION
     Dosage: 90MCG, 1 PUFF, TWO TIMES A DAY
     Route: 055
     Dates: start: 20170313
  2. PULMICORT FLEXHALER [Suspect]
     Active Substance: BUDESONIDE
     Indication: EMPHYSEMA
     Dosage: 90MCG, 1 PUFF, TWO TIMES A DAY
     Route: 055
     Dates: start: 20170313

REACTIONS (5)
  - Pulmonary congestion [Unknown]
  - Off label use [Not Recovered/Not Resolved]
  - Device malfunction [Unknown]
  - Drug ineffective [Unknown]
  - Product use in unapproved indication [Not Recovered/Not Resolved]

NARRATIVE: CASE EVENT DATE: 20170313
